FAERS Safety Report 6831797-9 (Version None)
Quarter: 2010Q2

REPORT INFORMATION
  Report Type: 
  Country: None (occurrence: None)
  Receive Date: 20100520
  Receipt Date: 20090918
  Transmission Date: 20101027
  Serious: Yes (Other)
  Sender: FDA-Public Use
  Company Number: 2005050340

PATIENT
  Age: 56 Year
  Sex: Female
  Weight: 76 kg

DRUGS (9)
  1. PROVERA [Suspect]
     Indication: HORMONE REPLACEMENT THERAPY
     Dosage: 10 MG, ORAL ; 5 MG, ORAL
     Route: 048
     Dates: start: 19960701, end: 19970701
  2. PROVERA [Suspect]
     Indication: HORMONE REPLACEMENT THERAPY
     Dosage: 10 MG, ORAL ; 5 MG, ORAL
     Route: 048
     Dates: start: 19981201, end: 20021001
  3. PREMARIN [Suspect]
     Indication: HORMONE REPLACEMENT THERAPY
     Dosage: 1.25 MG
     Dates: start: 19960701, end: 19970701
  4. PREMPRO [Suspect]
     Indication: HORMONE REPLACEMENT THERAPY
     Dosage: 0.625MG/2.5MG
     Dates: start: 19970725, end: 19980701
  5. PREMPRO [Suspect]
     Indication: HORMONE REPLACEMENT THERAPY
     Dosage: 0.625MG/2.5MG
     Dates: start: 19951101, end: 20040201
  6. PREMPRO [Suspect]
     Indication: HORMONE REPLACEMENT THERAPY
     Dosage: 0.625MG/2.5MG
     Dates: start: 19930901, end: 20040224
  7. PREMPHASE (PREMARIN;CYCRIN 14/14) [Suspect]
     Indication: HORMONE REPLACEMENT THERAPY
     Dosage: 0.625MG/5.0MG
     Dates: start: 19980701, end: 19981201
  8. ESTRATEST [Suspect]
     Indication: HORMONE REPLACEMENT THERAPY
     Dosage: 0.625MG/1.25
     Dates: start: 19981201, end: 20021001
  9. FEMHRT [Suspect]
     Indication: HORMONE REPLACEMENT THERAPY
     Dates: start: 20020701, end: 20040201

REACTIONS (1)
  - BREAST CANCER FEMALE [None]
